FAERS Safety Report 17720022 (Version 3)
Quarter: 2020Q2

REPORT INFORMATION
  Report Type: Spontaneous
  Country: US (occurrence: US)
  Receive Date: 20200428
  Receipt Date: 20200615
  Transmission Date: 20200714
  Serious: No
  Sender: FDA-Public Use
  Company Number: US-PFIZER INC-2020170246

PATIENT
  Sex: Female

DRUGS (3)
  1. ADVIL PM [Suspect]
     Active Substance: DIPHENHYDRAMINE CITRATE\IBUPROFEN
     Dosage: 2 DF, DAILY (2 TABLETS AT NIGHT DAILY)
     Dates: start: 202003
  2. ADVIL [Suspect]
     Active Substance: IBUPROFEN
     Dosage: 1 DF, EVERY 5 HOURS
     Route: 048
  3. ADVIL PM [Suspect]
     Active Substance: DIPHENHYDRAMINE CITRATE\IBUPROFEN
     Dosage: 2 DF, DAILY

REACTIONS (3)
  - Chest pain [Unknown]
  - Drug ineffective [Unknown]
  - Insomnia [Unknown]
